FAERS Safety Report 6165229-3 (Version None)
Quarter: 2009Q2

REPORT INFORMATION
  Report Type: 
  Country: None (occurrence: None)
  Receive Date: 20090423
  Receipt Date: 20090413
  Transmission Date: 20091009
  Serious: Yes (Hospitalization, Other)
  Sender: FDA-Public Use
  Company Number: JP-PFIZER INC-2008063367

PATIENT

DRUGS (12)
  1. SUNITINIB MALATE [Suspect]
     Indication: RENAL CANCER
     Dosage: 50 MG, 1X/DAY
     Route: 048
     Dates: start: 20060418, end: 20060501
  2. SUNITINIB MALATE [Suspect]
     Dosage: 37.5 MG, 1X/DAY
     Route: 048
     Dates: start: 20060509, end: 20060515
  3. SUNITINIB MALATE [Suspect]
     Dosage: 37.5 MG, 1X/DAY
     Route: 048
     Dates: start: 20060530, end: 20060626
  4. SUNITINIB MALATE [Suspect]
     Dosage: 25 MG, 1X/DAY
     Route: 048
     Dates: start: 20060711, end: 20060807
  5. SUNITINIB MALATE [Suspect]
     Dosage: 25 MG, 1X/DAY
     Route: 048
     Dates: start: 20060822, end: 20060918
  6. SUNITINIB MALATE [Suspect]
     Dosage: 25 MG, 1X/DAY
     Route: 048
     Dates: start: 20061003, end: 20061030
  7. SUNITINIB MALATE [Suspect]
     Dosage: 25 MG, 1X/DAY
     Dates: end: 20080709
  8. TAKEPRON [Concomitant]
     Route: 048
     Dates: start: 20061114
  9. LOSARTAN POTASSIUM [Concomitant]
     Route: 048
     Dates: start: 20080212
  10. ALLOPURINOL [Concomitant]
     Route: 048
     Dates: start: 20060418
  11. THYRADIN S [Concomitant]
     Route: 048
     Dates: start: 20071218
  12. WARFARIN SODIUM [Concomitant]
     Route: 048
     Dates: start: 20080606

REACTIONS (4)
  - ATRIAL FIBRILLATION [None]
  - CHOLECYSTITIS [None]
  - MYOCARDIAL INFARCTION [None]
  - SICK SINUS SYNDROME [None]
